FAERS Safety Report 9415461 (Version 3)
Quarter: 2013Q3

REPORT INFORMATION
  Report Type: Spontaneous
  Country: FR (occurrence: FR)
  Receive Date: 20130723
  Receipt Date: 20130822
  Transmission Date: 20140515
  Serious: Yes (Hospitalization)
  Sender: FDA-Public Use
  Company Number: FR-PFIZER INC-2013209957

PATIENT
  Age: 79 Year
  Sex: Female

DRUGS (8)
  1. TAHOR [Suspect]
     Indication: PROPHYLAXIS
     Dosage: 20 MG, DAILY
     Route: 048
  2. RAMIPRIL [Suspect]
     Indication: HYPERTENSION
     Dosage: 7.5 MG, DAILY
     Route: 048
  3. KARDEGIC [Suspect]
     Indication: PROPHYLAXIS
     Dosage: 75 MG, DAILY
     Route: 048
  4. NAFTIDROFURYL [Suspect]
     Indication: PERIPHERAL ARTERIAL OCCLUSIVE DISEASE
     Dosage: 200 MG, 3X/DAY
     Route: 048
  5. AVLOCARDYL [Suspect]
     Indication: HYPERTENSION
     Dosage: 10 MG, 2X/DAY
     Route: 048
  6. DAFALGAN [Suspect]
     Indication: PAIN
     Dosage: 1 G, 3X/DAY
     Route: 048
  7. ARIXTRA [Suspect]
     Indication: PROPHYLAXIS
     Dosage: 2.5 MG, DAILY
     Route: 058
     Dates: start: 20130418, end: 20130430
  8. LEVOTHYROX [Suspect]
     Indication: HYPOTHYROIDISM
     Dosage: 75 UG, DAILY
     Route: 048

REACTIONS (6)
  - Abdominal wall haematoma [Recovered/Resolved]
  - Red blood cell count decreased [Recovered/Resolved]
  - Hypotension [Recovered/Resolved]
  - Hypertensive emergency [Recovered/Resolved]
  - Drug ineffective [Unknown]
  - Pain in extremity [Recovered/Resolved]
